FAERS Safety Report 6433451-4 (Version None)
Quarter: 2009Q4

REPORT INFORMATION
  Report Type: 
  Country: None (occurrence: None)
  Receive Date: 20091106
  Receipt Date: 20091106
  Transmission Date: 20100525
  Serious: Yes (Other)
  Sender: FDA-Public Use
  Company Number: None

PATIENT
  Age: 45 Year
  Sex: Female
  Weight: 55.3388 kg

DRUGS (1)
  1. ACTONEL [Suspect]
     Dosage: ONE MONTHLY PO
     Route: 048
     Dates: start: 20091102, end: 20091102

REACTIONS (7)
  - ABDOMINAL PAIN UPPER [None]
  - HEADACHE [None]
  - HYPERHIDROSIS [None]
  - MUSCLE SPASMS [None]
  - MUSCULOSKELETAL STIFFNESS [None]
  - NAUSEA [None]
  - PYREXIA [None]
